FAERS Safety Report 8731240 (Version 2)
Quarter: 2012Q4

REPORT INFORMATION
  Report Type: 
  Country: US (occurrence: US)
  Receive Date: 20120820
  Receipt Date: 20121016
  Transmission Date: 20130627
  Serious: No
  Sender: FDA-Public Use
  Company Number: US-PFIZER INC-2012198226

PATIENT
  Age: 66 Year
  Sex: Female

DRUGS (1)
  1. SUTENT [Suspect]
     Indication: GASTROINTESTINAL STROMAL TUMOUR
     Dosage: 50 mg, cyclic: 28 days on followed by 14 days rest

REACTIONS (4)
  - Yellow skin [Unknown]
  - Chromaturia [Unknown]
  - Ocular icterus [Unknown]
  - Abdominal discomfort [Unknown]
